FAERS Safety Report 24291169 (Version 3)
Quarter: 2024Q3

REPORT INFORMATION
  Report Type: Report from Study
  Country: CA (occurrence: CA)
  Receive Date: 20240906
  Receipt Date: 20240930
  Transmission Date: 20241016
  Serious: Yes (Hospitalization, Other)
  Sender: NOVARTIS
  Company Number: CA-002147023-NVSC2024CA064436

PATIENT
  Age: 58 Year
  Sex: Female

DRUGS (3)
  1. COSENTYX [Suspect]
     Active Substance: SECUKINUMAB
     Indication: Psoriatic arthropathy
     Dosage: 300 MG, Q3W
     Route: 058
     Dates: start: 20190110
  2. COSENTYX [Suspect]
     Active Substance: SECUKINUMAB
     Dosage: 300 MG, Q3W
     Route: 058
     Dates: end: 20240306
  3. COSENTYX [Suspect]
     Active Substance: SECUKINUMAB
     Dosage: 300 MG, Q4W
     Route: 058

REACTIONS (10)
  - Gingivitis [Unknown]
  - Immunosuppression [Unknown]
  - Skin infection [Unknown]
  - Swelling face [Unknown]
  - Erythema [Unknown]
  - Dry skin [Unknown]
  - Herpes zoster [Recovered/Resolved]
  - Loose tooth [Unknown]
  - Abscess oral [Unknown]
  - Off label use [Unknown]

NARRATIVE: CASE EVENT DATE: 20240317
